FAERS Safety Report 18465245 (Version 2)
Quarter: 2021Q1

REPORT INFORMATION
  Report Type: Spontaneous
  Country: US (occurrence: US)
  Receive Date: 20201104
  Receipt Date: 20210312
  Transmission Date: 20210419
  Serious: Yes (Death, Hospitalization, Other)
  Sender: FDA-Public Use
  Company Number: US-INCYTE CORPORATION-2020IN010918

PATIENT

DRUGS (4)
  1. JAKAFI [Suspect]
     Active Substance: RUXOLITINIB
     Indication: MYELOFIBROSIS
     Dosage: 20 MILLIGRAM, BID
     Route: 048
     Dates: start: 20161018, end: 20201102
  2. WARFARIN [WARFARIN SODIUM] [Concomitant]
     Active Substance: WARFARIN SODIUM
     Indication: PRODUCT USED FOR UNKNOWN INDICATION
     Route: 065
  3. JAKAFI [Suspect]
     Active Substance: RUXOLITINIB
     Dosage: UNK
     Route: 065
     Dates: end: 20200923
  4. OXYCODONE HYDROCHLORIDE. [Concomitant]
     Active Substance: OXYCODONE HYDROCHLORIDE
     Indication: PRODUCT USED FOR UNKNOWN INDICATION
     Route: 065

REACTIONS (12)
  - Cardiac failure congestive [Fatal]
  - Cerebrovascular accident [Unknown]
  - Cardiac valve vegetation [Unknown]
  - Hypoxia [Unknown]
  - Multiple organ dysfunction syndrome [Fatal]
  - Budd-Chiari syndrome [Fatal]
  - Myeloproliferative neoplasm [Fatal]
  - Pneumonia [Unknown]
  - Portal hypertension [Unknown]
  - Illness [Unknown]
  - Septic shock [Fatal]
  - Malignant ascites [Unknown]
